FAERS Safety Report 9258913 (Version 1)
Quarter: 2013Q2

REPORT INFORMATION
  Report Type: Spontaneous
  Country: US (occurrence: US)
  Receive Date: 20130426
  Receipt Date: 20130426
  Transmission Date: 20140414
  Serious: Yes (Hospitalization)
  Sender: FDA-Public Use
  Company Number: US-009507513-2010SP063652

PATIENT
  Sex: Female
  Weight: 92.99 kg

DRUGS (1)
  1. NUVARING [Suspect]
     Indication: CONTRACEPTION
     Dates: start: 20050413, end: 200812

REACTIONS (3)
  - Deep vein thrombosis [Recovered/Resolved]
  - Herpes virus infection [Unknown]
  - Bronchitis [Unknown]
